FAERS Safety Report 14283717 (Version 1)
Quarter: 2017Q4

REPORT INFORMATION
  Report Type: Spontaneous
  Country: US (occurrence: US)
  Receive Date: 20171213
  Receipt Date: 20171213
  Transmission Date: 20180321
  Serious: Yes (Life-Threatening, Hospitalization, Disabling)
  Sender: FDA-Public Use
  Company Number: None

PATIENT
  Age: 74 Year
  Sex: Female
  Weight: 45 kg

DRUGS (6)
  1. FULVESTRANT. [Concomitant]
     Active Substance: FULVESTRANT
  2. ATENOLOL. [Concomitant]
     Active Substance: ATENOLOL
  3. RIVAROXABAN [Suspect]
     Active Substance: RIVAROXABAN
     Indication: VENOUS THROMBOSIS LIMB
     Route: 048
     Dates: start: 20170717, end: 20170815
  4. DEXAMETHASONE. [Concomitant]
     Active Substance: DEXAMETHASONE
  5. LETROZOLE. [Concomitant]
     Active Substance: LETROZOLE
  6. PROMETHAZINE [Concomitant]
     Active Substance: PROMETHAZINE\PROMETHAZINE HYDROCHLORIDE

REACTIONS (1)
  - Intracranial mass [None]

NARRATIVE: CASE EVENT DATE: 20170727
